FAERS Safety Report 23015171 (Version 1)
Quarter: 2023Q4

REPORT INFORMATION
  Report Type: Spontaneous
  Country: US (occurrence: US)
  Receive Date: 20231002
  Receipt Date: 20231002
  Transmission Date: 20240109
  Serious: No
  Sender: FDA-Public Use
  Company Number: US-AMGEN-USASP2023173188

PATIENT
  Age: 26 Year
  Sex: Male

DRUGS (6)
  1. AIMOVIG [Suspect]
     Active Substance: ERENUMAB-AOOE
     Indication: Migraine
     Dosage: UNK
     Route: 065
  2. BOTOX [Concomitant]
     Active Substance: ONABOTULINUMTOXINA
  3. Triptan [Concomitant]
  4. SUMATRIPTAN AN [Concomitant]
  5. PROPRANOLOL [Concomitant]
     Active Substance: PROPRANOLOL HYDROCHLORIDE
  6. KETAMINE [Concomitant]
     Active Substance: KETAMINE

REACTIONS (14)
  - Drug ineffective [Unknown]
  - Migraine [Unknown]
  - Neck pain [Unknown]
  - Back pain [Unknown]
  - Tinnitus [Unknown]
  - Postural orthostatic tachycardia syndrome [Unknown]
  - Fatigue [Unknown]
  - Blepharitis [Unknown]
  - Peripheral coldness [Unknown]
  - Insomnia [Unknown]
  - Temperature regulation disorder [Unknown]
  - Hyperhidrosis [Unknown]
  - Urticaria [Not Recovered/Not Resolved]
  - Exposure to fungus [Unknown]
